FAERS Safety Report 23624720 (Version 4)
Quarter: 2025Q1

REPORT INFORMATION
  Report Type: Report from Study
  Country: US (occurrence: US)
  Receive Date: 20240313
  Receipt Date: 20250309
  Transmission Date: 20250409
  Serious: No
  Sender: ACADIA PHARMACEUTICALS
  Company Number: US-ACADIA PHARMACEUTICALS INC.-ACA-2024-PIM-000833

PATIENT
  Age: 82 Year
  Sex: Male

DRUGS (21)
  1. NUPLAZID [Suspect]
     Active Substance: PIMAVANSERIN TARTRATE
     Indication: Parkinson^s disease
     Dosage: 34 MILLIGRAM, QD
     Route: 048
     Dates: start: 20240208, end: 20240210
  2. NUPLAZID [Suspect]
     Active Substance: PIMAVANSERIN TARTRATE
     Indication: Mental disorder
     Dosage: 10 MILLIGRAM, QD
     Route: 048
     Dates: start: 20240307
  3. NUPLAZID [Suspect]
     Active Substance: PIMAVANSERIN TARTRATE
     Indication: Parkinson^s disease
  4. BUSPIRONE [Concomitant]
     Active Substance: BUSPIRONE HYDROCHLORIDE
  5. CYMBALTA [Concomitant]
     Active Substance: DULOXETINE HYDROCHLORIDE
  6. CLONIDINE [Concomitant]
     Active Substance: CLONIDINE
  7. CARBIDOPA [Concomitant]
     Active Substance: CARBIDOPA
  8. FINASTERIDE [Concomitant]
     Active Substance: FINASTERIDE
  9. RIVASTIGMINE [Concomitant]
     Active Substance: RIVASTIGMINE
  10. ESOMEPRAZOLE [Concomitant]
     Active Substance: ESOMEPRAZOLE
  11. CARBIDOPA LEVODOPA [Concomitant]
     Active Substance: CARBIDOPA\LEVODOPA
  12. ADVAIR HFA [Concomitant]
     Active Substance: FLUTICASONE PROPIONATE\SALMETEROL XINAFOATE
  13. DULOXETINE [Concomitant]
     Active Substance: DULOXETINE
  14. LATANOPROST [Concomitant]
     Active Substance: LATANOPROST
  15. SOLIFENACIN [Concomitant]
     Active Substance: SOLIFENACIN
  16. MEMANTINE [Concomitant]
     Active Substance: MEMANTINE
  17. IRON [Concomitant]
     Active Substance: IRON
  18. MIRTAZAPINE [Concomitant]
     Active Substance: MIRTAZAPINE
  19. LEVOBUNOLOL [Concomitant]
     Active Substance: LEVOBUNOLOL
  20. COLACE [Concomitant]
     Active Substance: DOCUSATE SODIUM
  21. MELATONIN [Concomitant]
     Active Substance: MELATONIN

REACTIONS (2)
  - Diarrhoea [Recovered/Resolved]
  - General physical health deterioration [Unknown]

NARRATIVE: CASE EVENT DATE: 20240208
